FAERS Safety Report 12240499 (Version 1)
Quarter: 2016Q2

REPORT INFORMATION
  Report Type: Spontaneous
  Country: DE (occurrence: DE)
  Receive Date: 20160405
  Receipt Date: 20160405
  Transmission Date: 20160815
  Serious: Yes (Hospitalization, Other)
  Sender: FDA-Public Use
  Company Number: DE-ALLERGAN-1652681US

PATIENT
  Age: 56 Year
  Sex: Male

DRUGS (4)
  1. NACL [Concomitant]
     Active Substance: SODIUM CHLORIDE
     Indication: SALIVARY GLAND DISORDER
     Route: 030
  2. CISPLATIN. [Concomitant]
     Active Substance: CISPLATIN
     Indication: SQUAMOUS CELL CARCINOMA OF HEAD AND NECK
     Dosage: 30 MG/M2, Q WEEK, 3 CYCLES
  3. BOTULINUM TOXIN TYPE A UNK [Suspect]
     Active Substance: BOTULINUM TOXIN TYPE A
     Indication: SALIVARY GLAND DISORDER
     Dosage: 15 UNITS, SINGLE
     Route: 030
  4. FLUOROURACIL 5 FU [Concomitant]
     Active Substance: FLUOROURACIL
     Indication: SQUAMOUS CELL CARCINOMA OF HEAD AND NECK
     Dosage: 600 MG/M2, DAY 1 AND 5

REACTIONS (6)
  - Cerebral ischaemia [Unknown]
  - Dehydration [Unknown]
  - Apathy [Unknown]
  - Off label use [Unknown]
  - Seizure [Unknown]
  - Leukopenia [Unknown]
